FAERS Safety Report 19132895 (Version 1)
Quarter: 2021Q2

REPORT INFORMATION
  Report Type: Spontaneous
  Country: US (occurrence: US)
  Receive Date: 20210413
  Receipt Date: 20210413
  Transmission Date: 20210717
  Serious: Yes (Hospitalization)
  Sender: FDA-Public Use
  Company Number: None

PATIENT
  Age: 72 Year
  Sex: Female

DRUGS (10)
  1. OXYBUTYNIN. [Concomitant]
     Active Substance: OXYBUTYNIN CHLORIDE
  2. VITAMIN C [Concomitant]
     Active Substance: ASCORBIC ACID
  3. HUMIRA [Suspect]
     Active Substance: ADALIMUMAB
     Indication: OSTEOARTHRITIS
     Dosage: ?          OTHER FREQUENCY:EVERY OTHER WEEK;?
     Route: 058
  4. CLOBETASOL [Concomitant]
     Active Substance: CLOBETASOL
  5. VOLTAREN [Concomitant]
     Active Substance: DICLOFENAC SODIUM
  6. PANTOPRAZOLE [Concomitant]
     Active Substance: PANTOPRAZOLE
  7. ETODOLAC. [Concomitant]
     Active Substance: ETODOLAC
  8. PIMECROLIMUS. [Concomitant]
     Active Substance: PIMECROLIMUS
  9. LOSARTAN. [Concomitant]
     Active Substance: LOSARTAN
  10. SIMVASTATIN. [Concomitant]
     Active Substance: SIMVASTATIN

REACTIONS (1)
  - Intentional dose omission [None]

NARRATIVE: CASE EVENT DATE: 20210413
